FAERS Safety Report 19213183 (Version 1)
Quarter: 2021Q2

REPORT INFORMATION
  Report Type: Report from Study
  Country: ZA (occurrence: ZA)
  Receive Date: 20210504
  Receipt Date: 20210504
  Transmission Date: 20210717
  Serious: Yes (Other)
  Sender: FDA-Public Use
  Company Number: ZA-EMD SERONO-9236232

PATIENT
  Age: 39 Year
  Sex: Female

DRUGS (1)
  1. REBIF [Suspect]
     Active Substance: INTERFERON BETA-1A
     Indication: MULTIPLE SCLEROSIS
     Dates: start: 20140501

REACTIONS (3)
  - Urinary incontinence [Unknown]
  - Hip arthroplasty [Unknown]
  - Post procedural urine leak [Unknown]

NARRATIVE: CASE EVENT DATE: 202102
